FAERS Safety Report 8265834-4 (Version None)
Quarter: 2012Q2

REPORT INFORMATION
  Report Type: 
  Country: None (occurrence: None)
  Receive Date: 20120406
  Receipt Date: 20120404
  Transmission Date: 20120825
  Serious: Yes (Other)
  Sender: FDA-Public Use
  Company Number: US-PFIZER INC-2012085526

PATIENT
  Sex: Male
  Weight: 79.365 kg

DRUGS (4)
  1. PREPARATION H [Suspect]
     Indication: SCROTAL SWELLING
     Dosage: UNK
     Route: 065
  2. PREPARATION H MEDICATED WIPES [Suspect]
     Dosage: UNK
     Route: 065
     Dates: start: 20120401, end: 20120401
  3. PREPARATION H [Suspect]
     Dosage: UNK
     Route: 065
     Dates: start: 20120401, end: 20120401
  4. PREPARATION H MEDICATED WIPES [Suspect]
     Indication: SCROTAL SWELLING
     Dosage: UNK
     Route: 065

REACTIONS (4)
  - PRURITUS GENITAL [None]
  - SCROTAL IRRITATION [None]
  - HAEMORRHAGE [None]
  - GENITAL BURNING SENSATION [None]
